FAERS Safety Report 18082862 (Version 3)
Quarter: 2020Q3

REPORT INFORMATION
  Report Type: Spontaneous
  Country: PL (occurrence: PL)
  Receive Date: 20200729
  Receipt Date: 20200930
  Transmission Date: 20201103
  Serious: Yes (Other)
  Sender: FDA-Public Use
  Company Number: PL-AUROBINDO-AUR-APL-2020-036974

PATIENT
  Age: 40 Year
  Sex: Female

DRUGS (4)
  1. LETROZOLE. [Suspect]
     Active Substance: LETROZOLE
     Indication: BREAST CANCER
  2. LETROZOLE. [Suspect]
     Active Substance: LETROZOLE
     Indication: INVASIVE LOBULAR BREAST CARCINOMA
     Dosage: 2.5 MILLIGRAM, ONCE A DAY
     Route: 048
     Dates: start: 201812
  3. RIBOCICLIB. [Suspect]
     Active Substance: RIBOCICLIB
     Indication: INVASIVE LOBULAR BREAST CARCINOMA
     Dosage: 00 MILLIGRAM, ONCE A DAY (FROM DAY 1 TO DAY 21, FOLLOWED BY A 7?DAY BREAK)
     Route: 048
     Dates: start: 201812
  4. RIBOCICLIB. [Suspect]
     Active Substance: RIBOCICLIB
     Indication: BREAST CANCER
     Dosage: 400 MILLIGRAM, ONCE A DAY
     Route: 065

REACTIONS (1)
  - Neutropenia [Recovered/Resolved]
